FAERS Safety Report 7096972-X (Version None)
Quarter: 2010Q4

REPORT INFORMATION
  Report Type: 
  Country: None (occurrence: None)
  Receive Date: 20101111
  Receipt Date: 20100421
  Transmission Date: 20110411
  Serious: No
  Sender: FDA-Public Use
  Company Number: US-KINGPHARMUSA00001-K201000504

PATIENT
  Age: 61 Year
  Sex: Female

DRUGS (2)
  1. FLECTOR [Suspect]
     Indication: BACK PAIN
     Dosage: 1 PATCH, EVERY 12 HOURS
     Route: 061
  2. FLECTOR [Suspect]
     Indication: NECK PAIN

REACTIONS (2)
  - VAGINAL DISCHARGE [None]
  - VAGINAL DISORDER [None]
